FAERS Safety Report 5899671-2 (Version None)
Quarter: 2008Q3

REPORT INFORMATION
  Report Type: 
  Country: None (occurrence: None)
  Receive Date: 20080926
  Receipt Date: 20080924
  Transmission Date: 20090109
  Serious: Yes (Death, Hospitalization)
  Sender: FDA-Public Use
  Company Number: BR-ASTRAZENECA-2008UW20132

PATIENT
  Age: 17564 Day
  Sex: Female
  Weight: 49.6 kg

DRUGS (1)
  1. FASLODEX [Suspect]
     Indication: BREAST CANCER
     Route: 030
     Dates: start: 20060703, end: 20061106

REACTIONS (2)
  - INTRACRANIAL PRESSURE INCREASED [None]
  - RESPIRATORY FAILURE [None]
